FAERS Safety Report 5029596-6 (Version None)
Quarter: 2006Q2

REPORT INFORMATION
  Report Type: 
  Country: None (occurrence: None)
  Receive Date: 20060620
  Receipt Date: 20060613
  Transmission Date: 20061013
  Serious: Yes (Other)
  Sender: FDA-Public Use
  Company Number: US-GLAXOSMITHKLINE-A0608783A

PATIENT
  Age: 47 Year
  Sex: Male

DRUGS (1)
  1. SENSODYNE-F [Suspect]
     Indication: SENSITIVITY OF TEETH
     Dates: end: 20060101

REACTIONS (17)
  - ANXIETY [None]
  - ARTHRALGIA [None]
  - CARDIAC DISORDER [None]
  - CHEST DISCOMFORT [None]
  - CONDUCTION DISORDER [None]
  - DIFFICULTY IN WALKING [None]
  - DYSPNOEA [None]
  - EXERCISE TOLERANCE DECREASED [None]
  - FIBROMYALGIA [None]
  - MALAISE [None]
  - MONOPLEGIA [None]
  - MOVEMENT DISORDER [None]
  - MUSCLE TIGHTNESS [None]
  - NEUROPATHY [None]
  - PAIN IN EXTREMITY [None]
  - PARAESTHESIA [None]
  - WRIST FRACTURE [None]
